FAERS Safety Report 7454293-7 (Version None)
Quarter: 2011Q2

REPORT INFORMATION
  Report Type: 
  Country: None (occurrence: None)
  Receive Date: 20110503
  Receipt Date: 20110419
  Transmission Date: 20111010
  Serious: Yes (Hospitalization, Other)
  Sender: FDA-Public Use
  Company Number: US-JNJFOC-20100404184

PATIENT
  Sex: Female
  Weight: 90.72 kg

DRUGS (12)
  1. DURAGESIC [Suspect]
     Dosage: 100 UG/HR AND  50 UG/HR
     Route: 062
  2. PROZAC [Concomitant]
     Indication: ANXIETY
     Route: 048
  3. FOLIC ACID [Concomitant]
     Route: 048
  4. DIOVAN [Concomitant]
     Indication: HYPERTENSION
     Route: 048
  5. METHOTREXATE [Concomitant]
     Indication: RHEUMATOID ARTHRITIS
     Route: 048
  6. KLONOPIN [Concomitant]
     Indication: ANXIETY
     Route: 048
  7. ELAVIL [Concomitant]
     Route: 048
  8. DURAGESIC [Suspect]
     Dosage: 75 UG/HR AND 75 UG/HR
     Route: 062
  9. UNKNOWN MEDICATION [Concomitant]
     Indication: BREAKTHROUGH PAIN
     Route: 048
  10. DURAGESIC [Suspect]
     Indication: ARTHRALGIA
     Dosage: 75 UG/HR AND  75 UG/HR
     Route: 062
  11. LASIX [Concomitant]
     Indication: HYPERTENSION
     Route: 048
  12. POTASSIUM CHLORIDE [Concomitant]
     Route: 048

REACTIONS (8)
  - DRY MOUTH [None]
  - DYSPHONIA [None]
  - PRODUCTIVE COUGH [None]
  - CONDITION AGGRAVATED [None]
  - GAIT DISTURBANCE [None]
  - TREMOR [None]
  - ARTHRALGIA [None]
  - ARTHROPATHY [None]
